FAERS Safety Report 19040869 (Version 8)
Quarter: 2021Q4

REPORT INFORMATION
  Report Type: Report from Study
  Country: US (occurrence: US)
  Receive Date: 20210323
  Receipt Date: 20211201
  Transmission Date: 20220304
  Serious: Yes (Other)
  Sender: FDA-Public Use
  Company Number: US-NOVARTISPH-NVSC2021US060001

PATIENT
  Age: 66 Year
  Sex: Male

DRUGS (2)
  1. ENTRESTO [Suspect]
     Active Substance: SACUBITRIL\VALSARTAN
     Indication: Cardiac failure
     Dosage: 100 MG, BID (49/51 MG)
     Route: 048
     Dates: start: 20210224
  2. ENTRESTO [Suspect]
     Active Substance: SACUBITRIL\VALSARTAN
     Dosage: 0.5 DOSAGE FORM
     Route: 065

REACTIONS (17)
  - Cardiac dysfunction [Unknown]
  - Dry mouth [Unknown]
  - Tongue dry [Unknown]
  - Tooth fracture [Unknown]
  - Hypotension [Unknown]
  - Fatigue [Unknown]
  - Blood potassium increased [Unknown]
  - Rash [Unknown]
  - Constipation [Unknown]
  - Diarrhoea [Unknown]
  - Anxiety [Unknown]
  - Depression [Recovering/Resolving]
  - Feeling abnormal [Unknown]
  - Muscular weakness [Unknown]
  - Insomnia [Unknown]
  - Blood sodium increased [Unknown]
  - Wrong technique in product usage process [Unknown]

NARRATIVE: CASE EVENT DATE: 20210224
